FAERS Safety Report 6236019-8 (Version None)
Quarter: 2009Q2

REPORT INFORMATION
  Report Type: 
  Country: None (occurrence: None)
  Receive Date: 20090619
  Receipt Date: 20090617
  Transmission Date: 20091009
  Serious: Yes (Hospitalization)
  Sender: FDA-Public Use
  Company Number: KR-BRISTOL-MYERS SQUIBB COMPANY-14635262

PATIENT
  Age: 51 Year
  Sex: Male

DRUGS (5)
  1. METFORMIN HCL [Suspect]
     Indication: BLOOD GLUCOSE INCREASED
  2. INSULIN [Concomitant]
     Indication: DIABETES MELLITUS
  3. AMLODIPINE BESYLATE [Concomitant]
  4. ASPIRIN [Concomitant]
  5. VITAMIN B COMPLEX CAP [Concomitant]

REACTIONS (11)
  - ASTERIXIS [None]
  - BLOOD CHLORIDE DECREASED [None]
  - BLOOD GLUCOSE INCREASED [None]
  - BLOOD POTASSIUM DECREASED [None]
  - DYSARTHRIA [None]
  - ENCEPHALOPATHY [None]
  - GAIT DISTURBANCE [None]
  - GLYCOSYLATED HAEMOGLOBIN INCREASED [None]
  - HAEMOGLOBIN DECREASED [None]
  - MYOCLONUS [None]
  - TRISMUS [None]
